FAERS Safety Report 25723079 (Version 1)
Quarter: 2025Q3

REPORT INFORMATION
  Report Type: Spontaneous
  Country: US (occurrence: US)
  Receive Date: 20250825
  Receipt Date: 20250825
  Transmission Date: 20251020
  Serious: No
  Sender: AMGEN
  Company Number: US-AMGEN-USASP2025169143

PATIENT
  Sex: Female

DRUGS (4)
  1. OTEZLA [Suspect]
     Active Substance: APREMILAST
     Indication: Alopecia areata
     Dosage: 30 MILLIGRAM, BID
     Route: 048
  2. OTEZLA [Suspect]
     Active Substance: APREMILAST
     Indication: Off label use
  3. CLOBETASOL [Concomitant]
     Active Substance: CLOBETASOL
     Route: 065
  4. MINOXIDIL [Concomitant]
     Active Substance: MINOXIDIL
     Route: 065

REACTIONS (2)
  - Headache [Unknown]
  - Off label use [Unknown]
